FAERS Safety Report 9295534 (Version 1)
Quarter: 2013Q2

REPORT INFORMATION
  Report Type: Spontaneous
  Country: US (occurrence: None)
  Receive Date: 20130516
  Receipt Date: 20130516
  Transmission Date: 20140414
  Serious: Yes (Hospitalization)
  Sender: FDA-Public Use
  Company Number: None

PATIENT
  Age: 50 Year
  Sex: Male
  Weight: 123 kg

DRUGS (1)
  1. CISPLATIN [Suspect]
     Dosage: IMRT 6 FRACTIONS PER WEEK (35 FRACTIONS TOTAL) PLUS CISPLATIN 100 MG/M2 ON DAY 1 AND DAY 22

REACTIONS (14)
  - Gait disturbance [None]
  - Muscular weakness [None]
  - Fall [None]
  - Urinary retention [None]
  - Local swelling [None]
  - Nausea [None]
  - Cervical spinal stenosis [None]
  - Cervical cord compression [None]
  - Intervertebral disc protrusion [None]
  - Intervertebral disc protrusion [None]
  - Spinal cord oedema [None]
  - Spinal column stenosis [None]
  - Spinal vascular disorder [None]
  - Thrombosis [None]
